FAERS Safety Report 4732798-7 (Version None)
Quarter: 2005Q3

REPORT INFORMATION
  Report Type: 
  Country: None (occurrence: None)
  Receive Date: 20050801
  Receipt Date: 20050801
  Transmission Date: 20060218
  Serious: Yes (Other)
  Sender: FDA-Public Use
  Company Number: None

PATIENT
  Sex: Male
  Weight: 69.3096 kg

DRUGS (5)
  1. FLONASE [Suspect]
     Indication: COUGH
     Dosage: 1-2 SPRAYS   DAILY   NASAL
     Route: 045
     Dates: start: 20050610, end: 20050729
  2. FLONASE [Suspect]
     Indication: RHINITIS ALLERGIC
     Dosage: 1-2 SPRAYS   DAILY   NASAL
     Route: 045
     Dates: start: 20050610, end: 20050729
  3. ATENOLOL [Concomitant]
  4. LIPITOR [Concomitant]
  5. ASPIRIN [Concomitant]

REACTIONS (2)
  - NOCTURIA [None]
  - URINE FLOW DECREASED [None]
